FAERS Safety Report 7670759-9 (Version None)
Quarter: 2011Q3

REPORT INFORMATION
  Report Type: 
  Country: None (occurrence: None)
  Receive Date: 20110711
  Receipt Date: 20110415
  Transmission Date: 20111222
  Serious: Yes (Other)
  Sender: FDA-Public Use
  Company Number: IPC201104-000677

PATIENT

DRUGS (3)
  1. METOCLOPRAMIDE HYDROCHLORIDE [Suspect]
     Dates: start: 20080901, end: 20101001
  2. METOCLOPRAMIDE INJECTION [Suspect]
     Dates: start: 20080901, end: 20101001
  3. REGLAN [Suspect]
     Dates: start: 20080901, end: 20101001

REACTIONS (5)
  - TREMOR [None]
  - CHOREA [None]
  - DYSKINESIA [None]
  - TARDIVE DYSKINESIA [None]
  - EXTRAPYRAMIDAL DISORDER [None]
